FAERS Safety Report 22689319 (Version 7)
Quarter: 2024Q1

REPORT INFORMATION
  Report Type: Report from Study
  Country: CA (occurrence: CA)
  Receive Date: 20230711
  Receipt Date: 20240112
  Transmission Date: 20240409
  Serious: Yes (Other)
  Sender: FDA-Public Use
  Company Number: CA-JNJFOC-20230706475

PATIENT
  Age: 23 Year
  Sex: Male
  Weight: 70 kg

DRUGS (4)
  1. REMICADE [Suspect]
     Active Substance: INFLIXIMAB
     Indication: Colitis ulcerative
     Dosage: PATIENT ALSO RECEIVED THE DOSE ON 04/JUN/2023?EXPIRY: JUN-2023,
     Route: 041
     Dates: start: 20230521
  2. REMICADE [Suspect]
     Active Substance: INFLIXIMAB
     Dosage: STAT RESCUE DOSE 10 MG/KG THEN MAINTENANCE DOSE 10MG/KG AT EVERY 4 WEEKS
     Route: 041
     Dates: start: 2023
  3. REMICADE [Suspect]
     Active Substance: INFLIXIMAB
     Route: 041
     Dates: start: 2023, end: 20230825
  4. PREDNISONE [Concomitant]
     Active Substance: PREDNISONE
     Indication: Product used for unknown indication
     Dosage: DAILY
     Route: 048

REACTIONS (9)
  - Throat tightness [Recovered/Resolved]
  - Heart rate increased [Recovered/Resolved]
  - Cough [Recovered/Resolved]
  - Infusion related reaction [Recovering/Resolving]
  - Colitis ulcerative [Recovering/Resolving]
  - Hypersensitivity [Unknown]
  - Drug intolerance [Unknown]
  - Off label use [Unknown]
  - Incorrect drug administration rate [Unknown]

NARRATIVE: CASE EVENT DATE: 20230101
